FAERS Safety Report 13575249 (Version 5)
Quarter: 2017Q4

REPORT INFORMATION
  Report Type: Report from Study
  Country: NZ (occurrence: NZ)
  Receive Date: 20170524
  Receipt Date: 20171102
  Transmission Date: 20180320
  Serious: Yes (Death, Other)
  Sender: FDA-Public Use
  Company Number: NZ-ROCHE-1935678

PATIENT
  Age: 54 Year
  Sex: Male
  Weight: 71.3 kg

DRUGS (6)
  1. COBIMETINIB. [Suspect]
     Active Substance: COBIMETINIB
     Route: 048
     Dates: start: 20170511
  2. VEMURAFENIB. [Suspect]
     Active Substance: VEMURAFENIB
     Route: 048
     Dates: start: 20170511
  3. COBIMETINIB. [Suspect]
     Active Substance: COBIMETINIB
     Route: 048
  4. VEMURAFENIB. [Suspect]
     Active Substance: VEMURAFENIB
     Indication: MALIGNANT MELANOMA
     Route: 048
     Dates: start: 20170408
  5. VEMURAFENIB. [Suspect]
     Active Substance: VEMURAFENIB
     Route: 048
  6. COBIMETINIB. [Suspect]
     Active Substance: COBIMETINIB
     Indication: MALIGNANT MELANOMA
     Route: 048
     Dates: start: 20170413

REACTIONS (2)
  - Metastatic malignant melanoma [Fatal]
  - Thrombocytopenia [Recovered/Resolved]

NARRATIVE: CASE EVENT DATE: 20170412
